FAERS Safety Report 14848938 (Version 3)
Quarter: 2018Q2

REPORT INFORMATION
  Report Type: Spontaneous
  Country: US (occurrence: US)
  Receive Date: 20180504
  Receipt Date: 20180615
  Transmission Date: 20180711
  Serious: No
  Sender: FDA-Public Use
  Company Number: US-UNITED THERAPEUTICS-UNT-2018-006006

PATIENT
  Sex: Male

DRUGS (1)
  1. ORENITRAM [Suspect]
     Active Substance: TREPROSTINIL
     Indication: PULMONARY ARTERIAL HYPERTENSION
     Dosage: 2.125 MG, TID
     Route: 048
     Dates: start: 20171230

REACTIONS (1)
  - Fluid retention [Recovered/Resolved]

NARRATIVE: CASE EVENT DATE: 201803
